FAERS Safety Report 16874834 (Version 1)
Quarter: 2019Q4

REPORT INFORMATION
  Report Type: Other
  Country: FR (occurrence: FR)
  Receive Date: 20191001
  Receipt Date: 20191001
  Transmission Date: 20200122
  Serious: Yes (Hospitalization)
  Sender: FDA-Public Use
  Company Number: FR-ARBOR PHARMACEUTICALS, LLC-FR-2019ARB001396

PATIENT
  Age: 37 Year
  Sex: Female

DRUGS (2)
  1. TRIPTODUR [Suspect]
     Active Substance: TRIPTORELIN
     Indication: OFF LABEL USE
  2. TRIPTODUR [Suspect]
     Active Substance: TRIPTORELIN
     Indication: HYSTERECTOMY
     Dosage: 1 DOSAGE FORM (3RD INJECTION AFTER THE 15/06/2019 AND THE 15/07/2019) (1 DOSAGE FORMS, 1 IN 1 M)
     Route: 030
     Dates: start: 20190812, end: 20190812

REACTIONS (2)
  - Cerebral haematoma [Recovering/Resolving]
  - Off label use [Unknown]

NARRATIVE: CASE EVENT DATE: 20190825
